FAERS Safety Report 14923918 (Version 3)
Quarter: 2018Q4

REPORT INFORMATION
  Report Type: Spontaneous
  Country: US (occurrence: US)
  Receive Date: 20180522
  Receipt Date: 20181201
  Transmission Date: 20190204
  Serious: No
  Sender: FDA-Public Use
  Company Number: US-PFIZER INC-2018091322

PATIENT
  Age: 55 Year
  Sex: Female

DRUGS (19)
  1. DOCETAXEL. [Suspect]
     Active Substance: DOCETAXEL
     Indication: TRIPLE NEGATIVE BREAST CANCER
     Dosage: 75 MG/M2, CYCLIC (EVERY 3 WEEKS, 6 CYCLES)
     Route: 042
     Dates: start: 20150423, end: 20150808
  2. PEGFILGRASTIM [Concomitant]
     Active Substance: PEGFILGRASTIM
     Indication: CHEMOTHERAPY
     Dosage: 6 MG, CYCLIC (21-DAY, 6 CYCLE)
     Route: 058
  3. ZOFRAN [Concomitant]
     Active Substance: ONDANSETRON HYDROCHLORIDE
  4. DOCETAXEL. [Suspect]
     Active Substance: DOCETAXEL
     Indication: TRIPLE NEGATIVE BREAST CANCER
     Dosage: 75 MG/M2, CYCLIC (EVERY 3 WEEKS, 6 CYCLES)
     Route: 042
     Dates: start: 20150423, end: 20150808
  5. DOCETAXEL. [Suspect]
     Active Substance: DOCETAXEL
     Indication: TRIPLE NEGATIVE BREAST CANCER
     Dosage: 75 MG/M2, CYCLIC (EVERY 3 WEEKS, 6 CYCLES)
     Route: 042
     Dates: start: 20150423, end: 20150808
  6. NEOSAR [Concomitant]
     Active Substance: CYCLOPHOSPHAMIDE
     Indication: CHEMOTHERAPY
     Dosage: 500 MG/M2, UNK
     Route: 042
  7. TAXOTERE [Suspect]
     Active Substance: DOCETAXEL
     Indication: TRIPLE NEGATIVE BREAST CANCER
     Dosage: 75 MG/M2, CYCLIC (EVERY 3 WEEKS, 6 CYCLES)
     Route: 042
     Dates: start: 20150423, end: 20150808
  8. LISINOPRIL. [Concomitant]
     Active Substance: LISINOPRIL
  9. GLUMETZA [Concomitant]
     Active Substance: METFORMIN HYDROCHLORIDE
  10. DOCETAXEL SANDOZ [Suspect]
     Active Substance: DOCETAXEL
     Indication: TRIPLE NEGATIVE BREAST CANCER
     Dosage: 75 MG/M2, CYCLIC (EVERY 3 WEEKS, 6 CYCLES)
     Route: 042
     Dates: start: 20150423, end: 20150808
  11. DECADRON [Concomitant]
     Active Substance: DEXAMETHASONE
  12. DOXIL [Concomitant]
     Active Substance: DOXORUBICIN HYDROCHLORIDE
     Indication: CHEMOTHERAPY
     Dosage: 50 MG/M2, UNK
     Route: 042
  13. LORAZEPAM. [Concomitant]
     Active Substance: LORAZEPAM
  14. PRILOSEC [Concomitant]
     Active Substance: OMEPRAZOLE MAGNESIUM
  15. TRAMADOL. [Concomitant]
     Active Substance: TRAMADOL
  16. ADRIAMYCIN [Concomitant]
     Active Substance: DOXORUBICIN HYDROCHLORIDE
     Indication: CHEMOTHERAPY
     Dosage: 50 MG/M2, UNK
     Route: 042
  17. NEULASTA [Concomitant]
     Active Substance: PEGFILGRASTIM
  18. TYLENOL [Concomitant]
     Active Substance: ACETAMINOPHEN
  19. ASPIRIN. [Concomitant]
     Active Substance: ASPIRIN

REACTIONS (5)
  - Alopecia [Not Recovered/Not Resolved]
  - Hair disorder [Not Recovered/Not Resolved]
  - Madarosis [Not Recovered/Not Resolved]
  - Hair colour changes [Not Recovered/Not Resolved]
  - Hair texture abnormal [Not Recovered/Not Resolved]

NARRATIVE: CASE EVENT DATE: 201504
